FAERS Safety Report 7989086-5 (Version None)
Quarter: 2011Q4

REPORT INFORMATION
  Report Type: 
  Country: None (occurrence: None)
  Receive Date: 20111219
  Receipt Date: 20111208
  Transmission Date: 20120403
  Serious: Yes (Other)
  Sender: FDA-Public Use
  Company Number: US-US-EMD SERONO, INC.-7004152

PATIENT
  Sex: Female

DRUGS (6)
  1. ORAL CONTRACEPTIVES [Concomitant]
     Indication: DYSMENORRHOEA
     Route: 048
  2. INDOCIN [Concomitant]
     Route: 048
  3. ACYCLOVIR [Concomitant]
     Dates: start: 20080101
  4. REBIF [Suspect]
     Indication: MULTIPLE SCLEROSIS
     Route: 058
     Dates: start: 20100224, end: 20100401
  5. REBIF [Suspect]
     Route: 058
     Dates: end: 20110101
  6. PAXIL [Concomitant]
     Route: 048
     Dates: start: 20080101

REACTIONS (4)
  - DYSFUNCTIONAL UTERINE BLEEDING [None]
  - BACK INJURY [None]
  - INFLUENZA LIKE ILLNESS [None]
  - DYSMENORRHOEA [None]
